FAERS Safety Report 13635848 (Version 1)
Quarter: 2017Q2

REPORT INFORMATION
  Report Type: Spontaneous
  Country: US (occurrence: US)
  Receive Date: 20170531
  Receipt Date: 20170531
  Transmission Date: 20170830
  Serious: No
  Sender: FDA-Public Use
  Company Number: US-ASTELLAS-1748238

PATIENT
  Sex: Female

DRUGS (5)
  1. PROTONIX [Concomitant]
     Active Substance: PANTOPRAZOLE SODIUM
  2. TUMS [Concomitant]
     Active Substance: CALCIUM CARBONATE
  3. TARCEVA [Suspect]
     Active Substance: ERLOTINIB HYDROCHLORIDE
     Indication: NASAL SINUS CANCER
  4. ZOCOR [Concomitant]
     Active Substance: SIMVASTATIN
  5. TARCEVA [Suspect]
     Active Substance: ERLOTINIB HYDROCHLORIDE
     Indication: LUNG NEOPLASM MALIGNANT
     Route: 048
     Dates: start: 20160416

REACTIONS (3)
  - Diarrhoea [Unknown]
  - Gastrooesophageal reflux disease [Unknown]
  - Flatulence [Unknown]
